FAERS Safety Report 8493090-0 (Version None)
Quarter: 2012Q3

REPORT INFORMATION
  Report Type: 
  Country: None (occurrence: None)
  Receive Date: 20120706
  Receipt Date: 20120628
  Transmission Date: 20120928
  Serious: Yes (Other)
  Sender: FDA-Public Use
  Company Number: BR-SANOFI-AVENTIS-2012SA046484

PATIENT
  Age: 77 Year
  Sex: Male
  Weight: 73 kg

DRUGS (12)
  1. LANTUS [Suspect]
     Route: 065
  2. MACROGOL/POTASSIUM CHLORIDE/SODIUM BICARBONATE/SODIUM CHLORIDE [Concomitant]
     Indication: GASTROINTESTINAL DISORDER
     Dosage: STARTED ONE AND HALF YEAR AGO
  3. AUTOPEN 24 [Suspect]
     Indication: DEVICE THERAPY
  4. METOPROLOL SUCCINATE [Concomitant]
     Indication: BLOOD PRESSURE
     Dosage: STARTED 3 YEARS AGO
  5. LANTUS [Suspect]
     Route: 065
  6. GARLIC [Concomitant]
     Indication: LUNG DISORDER
     Dosage: STARTED 3 MONTHS AGO
  7. ACETYLSALICYLIC ACID SRT [Concomitant]
     Indication: ARTERIAL DISORDER
     Dosage: STARTED 4 YEARS AGO
  8. ATORVASTATIN [Concomitant]
     Dosage: STARTED 6 MONTHS AGO
  9. LOVAZA [Concomitant]
  10. POLYCARBOPHIL [Concomitant]
     Indication: GASTROINTESTINAL DISORDER
     Dosage: STARTED ONE AND HALF YEAR AGO
  11. AUTOPEN 24 [Suspect]
  12. LOSARTAN POTASSIUM [Concomitant]
     Indication: HYPERTENSION
     Dosage: STARTED 6 MONTHS AGO

REACTIONS (2)
  - LUNG NEOPLASM MALIGNANT [None]
  - COLORECTAL CANCER [None]
